FAERS Safety Report 23056716 (Version 2)
Quarter: 2023Q4

REPORT INFORMATION
  Report Type: Spontaneous
  Country: NL (occurrence: NL)
  Receive Date: 20231012
  Receipt Date: 20231015
  Transmission Date: 20240109
  Serious: Yes (Other)
  Sender: FDA-Public Use
  Company Number: NL-AUROBINDO-AUR-APL-2023-063238

PATIENT
  Age: 86 Year
  Sex: Male

DRUGS (2)
  1. CIPROFLOXACIN HYDROCHLORIDE [Suspect]
     Active Substance: CIPROFLOXACIN HYDROCHLORIDE
     Indication: Bacterial infection
     Dosage: 2 DOSAGE FORM (DAY)
     Route: 065
     Dates: start: 20230916, end: 20230925
  2. DIGOXIN [Concomitant]
     Active Substance: DIGOXIN
     Indication: Product used for unknown indication
     Dosage: UNK
     Route: 065

REACTIONS (6)
  - Hemiparesis [Unknown]
  - Condition aggravated [Unknown]
  - Muscular weakness [Not Recovered/Not Resolved]
  - Paraesthesia [Unknown]
  - Hypoaesthesia [Unknown]
  - Dizziness [Not Recovered/Not Resolved]

NARRATIVE: CASE EVENT DATE: 20230920
